FAERS Safety Report 7458783-2 (Version None)
Quarter: 2011Q2

REPORT INFORMATION
  Report Type: 
  Country: None (occurrence: None)
  Receive Date: 20110504
  Receipt Date: 20110415
  Transmission Date: 20111010
  Serious: Yes (Other)
  Sender: FDA-Public Use
  Company Number: US-BAYER-200943450NA

PATIENT
  Age: 55 Year
  Sex: Female
  Weight: 86.364 kg

DRUGS (70)
  1. CELLCEPT [Concomitant]
  2. CYCLOSPORINE [Concomitant]
  3. PREDNISONE [Concomitant]
  4. CIPROFLOXACIN HCL [Concomitant]
  5. MECLIZINE [Concomitant]
  6. RENAGEL [Concomitant]
  7. TRIAMCINOLONE [Concomitant]
  8. FERROUS SULFATE TAB [Concomitant]
  9. MAGNEVIST [Suspect]
     Indication: NUCLEAR MAGNETIC RESONANCE IMAGING
     Dates: start: 20030424, end: 20030424
  10. MAGNEVIST [Suspect]
     Indication: NUCLEAR MAGNETIC RESONANCE IMAGING BRAIN
     Dates: start: 20070710, end: 20070710
  11. NEXIUM [Concomitant]
  12. THYMOGLOBULIN [Concomitant]
  13. CLOTRIMAZOLE W/BETAMETHASONE DIPROPIONAT [Concomitant]
  14. XALATAN [Concomitant]
  15. MUPIROCIN [Concomitant]
  16. FUROSEMIDE [Concomitant]
  17. GENGRAF [Concomitant]
  18. DAPSONE [Concomitant]
  19. METOLAZONE [Concomitant]
  20. FENTANYL [Concomitant]
  21. DOCUSATE SODIUM [Concomitant]
  22. ZYRTEC [Concomitant]
  23. PROGRAF [Concomitant]
  24. INSULIN [Concomitant]
  25. METOPROLOL SUCCINATE [Concomitant]
     Dates: start: 20070101
  26. AZATHIOPRINE [Concomitant]
  27. VALTREX [Concomitant]
  28. ACETAMINOPHEN AND HYDROCODONE BITARTRATE [Concomitant]
  29. CHERATUSSIN AC [Concomitant]
  30. CLOPIDOGREL [Concomitant]
  31. MAGNEVIST [Suspect]
     Indication: COMPUTERISED TOMOGRAM
     Dates: start: 20071004, end: 20071004
  32. LANTUS [Concomitant]
  33. VENOFER [Concomitant]
     Dosage: QWK
  34. MEDROXYPROGESTERONE [Concomitant]
  35. IBUPROFEN [Concomitant]
  36. TRAVATAN [Concomitant]
  37. PREVACID [Concomitant]
  38. CELLCEPT [Concomitant]
  39. PROGRAF [Concomitant]
  40. NEPHROVITE [VIT C,VIT H,B5,B12,B9,B3,B6,B2,B1 HCL] [Concomitant]
  41. PREDNISONE [Concomitant]
  42. NEXIUM [Concomitant]
  43. NOVOLIN R [Concomitant]
  44. NORVASC [Concomitant]
  45. METOPROLOL TARTRATE [Concomitant]
  46. VALCYTE [Concomitant]
  47. CLOBETASOL PROPIONATE [Concomitant]
  48. PHOSLO [Concomitant]
  49. ZITHROMAX [Concomitant]
  50. NPH INSULIN [Concomitant]
  51. KEFLEX [Concomitant]
  52. AZATHIOPRINE [Concomitant]
  53. EPOGEN [Concomitant]
     Dosage: 14,400 U QWK
  54. QUININE SULFATE [Concomitant]
  55. FOSAMAX [Concomitant]
  56. LEVAQUIN [Concomitant]
  57. FLUCONAZOLE [Concomitant]
  58. CEPHALEXIN [Concomitant]
  59. DOXYCHEL HYCLATE [Concomitant]
  60. LORAZEPAM [Concomitant]
  61. NORVASC [Concomitant]
  62. RENAGEL [Concomitant]
     Dosage: WITH MEALS
  63. LIPITOR [Concomitant]
  64. DIFLUCAN [Concomitant]
  65. CHLORTHALIDONE [Concomitant]
  66. TIMOLOL [Concomitant]
  67. PREMARIN [Concomitant]
  68. NEOMYCIN SULF/POLYMYXIN B SULF/DEXAMETHASONE [Concomitant]
  69. LANTUS [Concomitant]
  70. SODIUM BICARBONATE [Concomitant]

REACTIONS (28)
  - ERYTHEMA [None]
  - SKIN HYPERPIGMENTATION [None]
  - MUSCULOSKELETAL STIFFNESS [None]
  - NEPHROGENIC SYSTEMIC FIBROSIS [None]
  - PAIN IN EXTREMITY [None]
  - MUSCULAR WEAKNESS [None]
  - JOINT RANGE OF MOTION DECREASED [None]
  - SKIN DISCOLOURATION [None]
  - MOBILITY DECREASED [None]
  - PRURITUS GENERALISED [None]
  - FIBROSIS [None]
  - WHEELCHAIR USER [None]
  - ASTHENIA [None]
  - MUSCLE TIGHTNESS [None]
  - SKIN INDURATION [None]
  - SKIN EXFOLIATION [None]
  - SKIN PLAQUE [None]
  - SCAB [None]
  - HYPERTONIA [None]
  - SKIN TIGHTNESS [None]
  - BLISTER [None]
  - GAIT DISTURBANCE [None]
  - PAIN [None]
  - HYPOAESTHESIA [None]
  - OEDEMA PERIPHERAL [None]
  - DYSPNOEA [None]
  - SKIN HYPERTROPHY [None]
  - WALKING DISABILITY [None]
